FAERS Safety Report 9656905 (Version 1)
Quarter: 2013Q4

REPORT INFORMATION
  Report Type: Spontaneous
  Country: ES (occurrence: ES)
  Receive Date: 20131030
  Receipt Date: 20131030
  Transmission Date: 20140711
  Serious: Yes (Other)
  Sender: FDA-Public Use
  Company Number: PHHY2013ES119376

PATIENT
  Age: 57 Year
  Sex: Male

DRUGS (6)
  1. ISONIAZID [Suspect]
     Indication: MYCOBACTERIAL INFECTION
  2. LEVOFLOXACIN [Suspect]
     Indication: MYCOBACTERIAL INFECTION
  3. PYRAZINAMIDE [Suspect]
     Indication: MYCOBACTERIAL INFECTION
  4. AZITHROMYCIN [Suspect]
     Indication: MYCOBACTERIAL INFECTION
  5. ETHAMBUTOL [Suspect]
     Indication: MYCOBACTERIAL INFECTION
  6. RIFAMPICIN [Suspect]
     Indication: MYCOBACTERIAL INFECTION

REACTIONS (2)
  - Acute hepatic failure [Unknown]
  - Jaundice [Unknown]
